FAERS Safety Report 16203009 (Version 2)
Quarter: 2019Q2

REPORT INFORMATION
  Report Type: Spontaneous
  Country: FR (occurrence: FR)
  Receive Date: 20190416
  Receipt Date: 20190418
  Transmission Date: 20190711
  Serious: Yes (Hospitalization)
  Sender: FDA-Public Use
  Company Number: FR-ALLERGAN-1916320US

PATIENT
  Sex: Female

DRUGS (7)
  1. NITROFURANTOIN. [Concomitant]
     Active Substance: NITROFURANTOIN
     Indication: MULTIPLE SCLEROSIS
     Route: 065
  2. FAMPRIDINE [Interacting]
     Active Substance: DALFAMPRIDINE
     Indication: MULTIPLE SCLEROSIS
     Dosage: UNK, BID
     Route: 065
     Dates: start: 2013
  3. OXYBUTYNIN PCH - BP [Suspect]
     Active Substance: OXYBUTYNIN
     Indication: MULTIPLE SCLEROSIS
     Route: 065
  4. BACLOFEN. [Interacting]
     Active Substance: BACLOFEN
     Indication: MULTIPLE SCLEROSIS
     Dosage: 30 MG, QD
     Route: 065
  5. BACLOFEN. [Interacting]
     Active Substance: BACLOFEN
     Dosage: 70 UNK
     Route: 065
     Dates: start: 2013
  6. BIOTIN [Suspect]
     Active Substance: BIOTIN
     Dosage: 100 MG, TID
     Route: 048
     Dates: start: 2016
  7. BIOTIN [Suspect]
     Active Substance: BIOTIN
     Indication: MULTIPLE SCLEROSIS
     Dosage: 100 MG, THREE TIMES PER DAY
     Route: 048
     Dates: start: 2016

REACTIONS (3)
  - Status epilepticus [Recovering/Resolving]
  - Off label use [Unknown]
  - Potentiating drug interaction [Unknown]
